FAERS Safety Report 25899275 (Version 1)
Quarter: 2025Q4

REPORT INFORMATION
  Report Type: Report from Study
  Country: CA (occurrence: CA)
  Receive Date: 20251009
  Receipt Date: 20251009
  Transmission Date: 20260117
  Serious: Yes (Hospitalization)
  Sender: ABBVIE
  Company Number: CA-ABBVIE-6494108

PATIENT
  Age: 39 Year
  Sex: Male

DRUGS (1)
  1. RINVOQ [Suspect]
     Active Substance: UPADACITINIB
     Indication: Crohn^s disease
     Dosage: FORM STRENGTH - 30 MILLIGRAM
     Route: 048

REACTIONS (1)
  - Intestinal resection [Recovering/Resolving]

NARRATIVE: CASE EVENT DATE: 20250929
